FAERS Safety Report 6678211-4 (Version None)
Quarter: 2010Q2

REPORT INFORMATION
  Report Type: 
  Country: None (occurrence: None)
  Receive Date: 20100408
  Receipt Date: 20100408
  Transmission Date: 20101027
  Serious: Yes (Hospitalization)
  Sender: FDA-Public Use
  Company Number: None

PATIENT
  Age: 48 Year
  Sex: Female
  Weight: 81.6 kg

DRUGS (2)
  1. BEXXAR [Suspect]
     Indication: LYMPHOMA
     Dosage: 75CGY XL IV
     Route: 042
     Dates: start: 20091202, end: 20091209
  2. VELCADE [Suspect]
     Indication: LYMPHOMA
     Dosage: 1.2 MG/M2 X5 IV
     Route: 042
     Dates: start: 20091207, end: 20091221

REACTIONS (2)
  - BODY TEMPERATURE INCREASED [None]
  - CELLULITIS [None]
